FAERS Safety Report 22164052 (Version 3)
Quarter: 2023Q2

REPORT INFORMATION
  Report Type: Report from Study
  Country: US (occurrence: None)
  Receive Date: 20230402
  Receipt Date: 20230531
  Transmission Date: 20230721
  Serious: Yes (Hospitalization)
  Sender: FDA-Public Use
  Company Number: US-ROCHE-3285100

PATIENT
  Age: 53 Year
  Sex: Female
  Weight: 145.58 kg

DRUGS (3)
  1. ATEZOLIZUMAB [Suspect]
     Active Substance: ATEZOLIZUMAB
     Indication: Triple negative breast cancer
     Dosage: LAST DOSE OF ATEZOLIZUMAB WAS ON 09-MAR-2023, 840 MILLIGRAM DAY 1 + 15;
     Route: 041
     Dates: start: 20211130, end: 20230309
  2. EGANELISIB [Suspect]
     Active Substance: EGANELISIB
     Indication: Triple negative breast cancer
     Route: 048
     Dates: start: 20211130
  3. PACLITAXEL [Suspect]
     Active Substance: PACLITAXEL
     Indication: Triple negative breast cancer
     Dosage: LAST DOSE OF NAB-PACLITAXEL WAS ON 29/DEC/2022, 1 YEAR 3 MONTHS 15 DAYS, 100 MG/M2, DAY 1, 8, + 15
     Route: 042
     Dates: start: 20211130, end: 20230316

REACTIONS (2)
  - Abdominal pain [Recovered/Resolved]
  - Abdominal pain [Recovered/Resolved]

NARRATIVE: CASE EVENT DATE: 20230124
